FAERS Safety Report 5279119-1 (Version None)
Quarter: 2007Q1

REPORT INFORMATION
  Report Type: 
  Country: None (occurrence: None)
  Receive Date: 20070327
  Receipt Date: 20070327
  Transmission Date: 20070707
  Serious: Yes (Other)
  Sender: FDA-Public Use
  Company Number: None

PATIENT
  Age: 81 Year
  Sex: Male

DRUGS (13)
  1. VORICONAZOLE [Suspect]
     Indication: ASPERGILLOSIS
     Dosage: 400 MG EVERY 12 HOURS IV
     Route: 042
     Dates: start: 20070104, end: 20070104
  2. VORICONAZOLE [Suspect]
     Indication: ASPERGILLOSIS
     Dosage: 200 MG EVERY 12 HOURS PO
     Route: 048
     Dates: start: 20070105, end: 20070110
  3. TYLENOL W/ CODEINE NO. 3 [Concomitant]
  4. INHALERS [Concomitant]
  5. DILTIAZEM [Concomitant]
  6. COLACE [Concomitant]
  7. HALOPERIDOL [Concomitant]
  8. LORAZEPAM [Concomitant]
  9. ACTOS [Concomitant]
  10. ZOCOR [Concomitant]
  11. FLOMAX [Concomitant]
  12. TEMAZEPAM [Concomitant]
  13. ANCEF [Concomitant]

REACTIONS (11)
  - AGITATION [None]
  - AMNESIA [None]
  - CONFUSIONAL STATE [None]
  - DISTURBANCE IN ATTENTION [None]
  - DYSARTHRIA [None]
  - ENCEPHALOPATHY [None]
  - HALLUCINATION [None]
  - NYSTAGMUS [None]
  - PUPILLARY REFLEX IMPAIRED [None]
  - SPEECH DISORDER [None]
  - VISUAL DISTURBANCE [None]
